FAERS Safety Report 4619471-0 (Version None)
Quarter: 2005Q1

REPORT INFORMATION
  Report Type: 
  Country: None (occurrence: None)
  Receive Date: 20050325
  Receipt Date: 20050316
  Transmission Date: 20050727
  Serious: Yes (Hospitalization)
  Sender: FDA-Public Use
  Company Number: GB-JNJFOC-20050106494

PATIENT
  Age: 15 Month
  Sex: Female

DRUGS (4)
  1. IBUPROFEN [Suspect]
     Indication: PYREXIA
     Dosage: 5 MG/KG, 1 IN 1 DAY, ORAL
     Route: 049
  2. PARACETAMOL [Suspect]
     Route: 049
  3. PARACETAMOL [Suspect]
     Indication: PYREXIA
     Dosage: 15 MG/KG, 1 IN 1 DAY, ORAL
     Route: 049
  4. CEFUROXIME [Concomitant]
     Indication: LOBAR PNEUMONIA
     Route: 042

REACTIONS (3)
  - HYPOTHERMIA [None]
  - SEPSIS [None]
  - THERAPY NON-RESPONDER [None]
